FAERS Safety Report 21311817 (Version 1)
Quarter: 2022Q3

REPORT INFORMATION
  Report Type: Spontaneous
  Country: US (occurrence: None)
  Receive Date: 20220909
  Receipt Date: 20220909
  Transmission Date: 20221027
  Serious: No
  Sender: FDA-Public Use
  Company Number: US-ARIS GLOBAL-202203-0502

PATIENT
  Age: 45 Year
  Sex: Male

DRUGS (18)
  1. OXERVATE [Suspect]
     Active Substance: CENEGERMIN-BKBJ
     Indication: Neurotrophic keratopathy
     Route: 047
     Dates: start: 20220307
  2. BELSOMRA [Concomitant]
     Active Substance: SUVOREXANT
  3. PILOCARPINE HYDROCHLORIDE [Concomitant]
     Active Substance: PILOCARPINE HYDROCHLORIDE
  4. OCUFLOX [Concomitant]
     Active Substance: OFLOXACIN
  5. CHAMOMILE FLOWER [Concomitant]
  6. LAVENDER OIL [Concomitant]
     Active Substance: LAVENDER OIL
     Dosage: OIL
  7. PASSION FRUIT FLAVOR [Concomitant]
  8. MAGNESIUM [Concomitant]
     Active Substance: MAGNESIUM
  9. VITAMINS [Concomitant]
     Active Substance: VITAMINS
  10. VITAMIN C [Concomitant]
     Active Substance: ASCORBIC ACID
  11. BENADRYL [Concomitant]
     Active Substance: DIPHENHYDRAMINE HYDROCHLORIDE
  12. HERBALS [Concomitant]
     Active Substance: HERBALS
  13. FISH OIL [Concomitant]
     Active Substance: FISH OIL
  14. SYSTANE (HYPROMELLOSE 2910 (4000 MPA.S)) [Concomitant]
     Active Substance: HYPROMELLOSE 2910 (4000 MPA.S)
     Dosage: 0.3 %-0.4%   PRN-AS NEEDED PER DAY.
  15. PREDNISOLONE-NEPAFENAC [Concomitant]
  16. ZOLOFT [Concomitant]
     Active Substance: SERTRALINE HYDROCHLORIDE
  17. PRED FORTE [Concomitant]
     Active Substance: PREDNISOLONE ACETATE
  18. DOXYCYCLINE [Concomitant]
     Active Substance: DOXYCYCLINE

REACTIONS (1)
  - Photopsia [Recovered/Resolved]

NARRATIVE: CASE EVENT DATE: 20220301
